FAERS Safety Report 19883012 (Version 2)
Quarter: 2021Q4

REPORT INFORMATION
  Report Type: Spontaneous
  Country: US (occurrence: US)
  Receive Date: 20210926
  Receipt Date: 20211227
  Transmission Date: 20220303
  Serious: No
  Sender: FDA-Public Use
  Company Number: US-SA-SAC20210920000821

PATIENT
  Age: 62 Year
  Sex: Female
  Weight: 81.64 kg

DRUGS (1)
  1. DUPIXENT [Suspect]
     Active Substance: DUPILUMAB
     Dosage: 300MG, OTHER
     Route: 058
     Dates: start: 202107

REACTIONS (5)
  - Weight increased [Unknown]
  - Alopecia [Unknown]
  - General symptom [Unknown]
  - Hair injury [Unknown]
  - Urticaria [Unknown]

NARRATIVE: CASE EVENT DATE: 20210708
